FAERS Safety Report 5521063-6 (Version None)
Quarter: 2007Q4

REPORT INFORMATION
  Report Type: 
  Country: None (occurrence: None)
  Receive Date: 20071119
  Receipt Date: 20071106
  Transmission Date: 20080405
  Serious: Yes (Other)
  Sender: FDA-Public Use
  Company Number: FR-JNJFOC-20071106411

PATIENT
  Sex: Female

DRUGS (5)
  1. TOPALGIC LP [Suspect]
     Route: 048
  2. TOPALGIC LP [Suspect]
     Indication: MUSCULOSKELETAL PAIN
     Route: 048
  3. INEXIUM [Concomitant]
     Route: 065
  4. IMOVANE [Concomitant]
     Route: 065
  5. ACETAMINOPHEN [Concomitant]
     Route: 065

REACTIONS (2)
  - INCREASED APPETITE [None]
  - WEIGHT DECREASED [None]
